FAERS Safety Report 9436358 (Version 1)
Quarter: 2013Q3

REPORT INFORMATION
  Report Type: Spontaneous
  Country: US (occurrence: US)
  Receive Date: 20130802
  Receipt Date: 20130802
  Transmission Date: 20140515
  Serious: No
  Sender: FDA-Public Use
  Company Number: US-BIOGENIDEC-2013BI070359

PATIENT
  Age: 51 Year
  Sex: Female

DRUGS (2)
  1. TYSABRI [Suspect]
     Indication: MULTIPLE SCLEROSIS
     Route: 042
     Dates: start: 20091109, end: 20111228
  2. TYSABRI [Suspect]
     Indication: MULTIPLE SCLEROSIS
     Route: 042
     Dates: start: 20130717

REACTIONS (7)
  - Stress [Recovered/Resolved]
  - Anxiety [Recovered/Resolved]
  - Depression [Recovered/Resolved]
  - Back pain [Unknown]
  - Pain [Unknown]
  - Crying [Unknown]
  - Multiple sclerosis relapse [Recovered/Resolved]
